FAERS Safety Report 5713381-3 (Version None)
Quarter: 2008Q2

REPORT INFORMATION
  Report Type: 
  Country: None (occurrence: None)
  Receive Date: 20080422
  Receipt Date: 20080417
  Transmission Date: 20081010
  Serious: Yes (Other)
  Sender: FDA-Public Use
  Company Number: HQWYE120912SEP07

PATIENT
  Sex: Female
  Weight: 82.63 kg

DRUGS (1)
  1. PREMARIN [Suspect]

REACTIONS (1)
  - CONTRALATERAL BREAST CANCER [None]
